FAERS Safety Report 23293430 (Version 1)
Quarter: 2023Q4

REPORT INFORMATION
  Report Type: Spontaneous
  Country: US (occurrence: US)
  Receive Date: 20231213
  Receipt Date: 20231213
  Transmission Date: 20240110
  Serious: Yes (Other)
  Sender: FDA-Public Use
  Company Number: US-SUN PHARMACEUTICAL INDUSTRIES LTD-2023R1-423319

PATIENT
  Age: 79 Year
  Sex: Male

DRUGS (1)
  1. PAZOPANIB [Suspect]
     Active Substance: PAZOPANIB
     Indication: Renal cell carcinoma
     Dosage: 600 MILLIGRAM, QD
     Route: 065

REACTIONS (5)
  - Drug withdrawal syndrome [Unknown]
  - Condition aggravated [Unknown]
  - Necrosis [Unknown]
  - Ulcer [Unknown]
  - Wound secretion [Unknown]
